FAERS Safety Report 23986093 (Version 2)
Quarter: 2024Q3

REPORT INFORMATION
  Report Type: Spontaneous
  Country: US (occurrence: US)
  Receive Date: 20240618
  Receipt Date: 20240715
  Transmission Date: 20241017
  Serious: No
  Sender: CALLIDITAS THERAPEUTICS
  Company Number: US-Calliditas-2024CAL01030

PATIENT
  Age: 73 Year
  Sex: Male
  Weight: 94.3 kg

DRUGS (3)
  1. TARPEYO [Suspect]
     Active Substance: BUDESONIDE
     Indication: IgA nephropathy
     Route: 048
     Dates: start: 20240308, end: 20240527
  2. LISINOPRIL [Concomitant]
     Active Substance: LISINOPRIL
  3. JARDIANCE [Concomitant]
     Active Substance: EMPAGLIFLOZIN

REACTIONS (7)
  - Joint swelling [Recovered/Resolved]
  - Dysphonia [Recovered/Resolved]
  - Dysphonia [Recovered/Resolved]
  - Rash pruritic [Recovered/Resolved]
  - Protein urine present [Recovered/Resolved]
  - Peripheral swelling [Recovered/Resolved]
  - Arthralgia [Recovered/Resolved]

NARRATIVE: CASE EVENT DATE: 20240405
